FAERS Safety Report 23959153 (Version 1)
Quarter: 2024Q2

REPORT INFORMATION
  Report Type: Spontaneous
  Country: US (occurrence: US)
  Receive Date: 20240611
  Receipt Date: 20240611
  Transmission Date: 20240715
  Serious: Yes (Hospitalization, Other)
  Sender: FDA-Public Use
  Company Number: US-CADILA HEALTHCARE LIMITED-US-ZYDUS-107976

PATIENT

DRUGS (2)
  1. VERAPAMIL [Suspect]
     Active Substance: VERAPAMIL HYDROCHLORIDE
     Indication: Subarachnoid haemorrhage
     Dosage: 10 MILLIGRAM
     Route: 013
  2. NITROGLYCERIN [Suspect]
     Active Substance: NITROGLYCERIN
     Indication: Subarachnoid haemorrhage
     Dosage: UNK
     Route: 065

REACTIONS (2)
  - Cardiac arrest [Recovering/Resolving]
  - Drug ineffective [Unknown]
